FAERS Safety Report 5471139-7 (Version None)
Quarter: 2007Q3

REPORT INFORMATION
  Report Type: 
  Country: None (occurrence: None)
  Receive Date: 20070928
  Receipt Date: 20070917
  Transmission Date: 20080115
  Serious: Yes (Other)
  Sender: FDA-Public Use
  Company Number: NL-ROCHE-518499

PATIENT
  Age: 15 Month
  Sex: Female

DRUGS (1)
  1. ROCEPHIN [Suspect]
     Indication: DRUG USE FOR UNKNOWN INDICATION
     Route: 042
     Dates: start: 20070905

REACTIONS (1)
  - ERYTHEMA MULTIFORME [None]
